FAERS Safety Report 5735211-6 (Version None)
Quarter: 2008Q2

REPORT INFORMATION
  Report Type: 
  Country: None (occurrence: None)
  Receive Date: 20080512
  Receipt Date: 20080207
  Transmission Date: 20081010
  Serious: No
  Sender: FDA-Public Use
  Company Number: US-ABBOTT-08P-163-0437410-00

PATIENT
  Sex: Female
  Weight: 68.1 kg

DRUGS (1)
  1. KALETRA [Suspect]
     Indication: VIRAL INFECTION
     Route: 048
     Dates: start: 20080105

REACTIONS (1)
  - DIARRHOEA [None]
